FAERS Safety Report 14999538 (Version 1)
Quarter: 2018Q2

REPORT INFORMATION
  Report Type: Spontaneous
  Country: US (occurrence: US)
  Receive Date: 20180612
  Receipt Date: 20180612
  Transmission Date: 20180711
  Serious: Yes (Life-Threatening, Hospitalization, Other)
  Sender: FDA-Public Use
  Company Number: US-BION-007222

PATIENT
  Age: 40 Year
  Sex: Female

DRUGS (2)
  1. CIMETIDINE [Interacting]
     Active Substance: CIMETIDINE
     Route: 048
  2. LOPERAMIDE HYDROCHLORIDE UNKNOWN PRODUCT [Suspect]
     Active Substance: LOPERAMIDE HYDROCHLORIDE
     Dosage: 10 EMPTY BOTTLES?TOTAL OF 1920-4000 MG
     Route: 048

REACTIONS (5)
  - Urinary incontinence [Unknown]
  - Electrocardiogram QT prolonged [Recovered/Resolved]
  - Drug abuse [Unknown]
  - Drug interaction [Unknown]
  - Ventricular tachycardia [Recovered/Resolved]
